FAERS Safety Report 7167321-3 (Version None)
Quarter: 2010Q4

REPORT INFORMATION
  Report Type: 
  Country: None (occurrence: None)
  Receive Date: 20101216
  Receipt Date: 20101214
  Transmission Date: 20110411
  Serious: Yes (Other)
  Sender: FDA-Public Use
  Company Number: DE-PFIZER INC-2010172989

PATIENT
  Sex: Female

DRUGS (1)
  1. PANTOPRAZOLE [Suspect]

REACTIONS (2)
  - CARDIOVASCULAR DISORDER [None]
  - NAUSEA [None]
